FAERS Safety Report 10654207 (Version 1)
Quarter: 2014Q4

REPORT INFORMATION
  Report Type: Spontaneous
  Country: FR (occurrence: FR)
  Receive Date: 20141216
  Receipt Date: 20141216
  Transmission Date: 20150529
  Serious: Yes (Other)
  Sender: FDA-Public Use
  Company Number: FR-UCBSA-2014020962

PATIENT
  Age: 87 Year
  Sex: Male

DRUGS (3)
  1. KEPPRA [Suspect]
     Active Substance: LEVETIRACETAM
     Indication: POST-TRAUMATIC EPILEPSY
     Dosage: UNK
     Route: 048
     Dates: start: 20140401, end: 20140715
  2. VIMPAT [Suspect]
     Active Substance: LACOSAMIDE
     Indication: EPILEPSY
     Dosage: UNK
     Dates: start: 20140406, end: 20140526
  3. URBANYL [Concomitant]
     Active Substance: CLOBAZAM
     Indication: POST-TRAUMATIC EPILEPSY
     Dosage: DAILY DOSE: 10 MG
     Dates: start: 20140401, end: 20141106

REACTIONS (2)
  - Epilepsy [Unknown]
  - Encephalopathy [Unknown]

NARRATIVE: CASE EVENT DATE: 2014
